FAERS Safety Report 10139672 (Version 1)
Quarter: 2014Q2

REPORT INFORMATION
  Report Type: Other
  Country: US (occurrence: US)
  Receive Date: 20140429
  Receipt Date: 20140429
  Transmission Date: 20141212
  Serious: Yes (Other)
  Sender: FDA-Public Use
  Company Number: US-SHIRE-US201401517

PATIENT
  Age: 14 Year
  Sex: Male

DRUGS (1)
  1. ADDERALL XR [Suspect]
     Indication: PRODUCT USED FOR UNKNOWN INDICATION
     Dosage: 30 MG, 1X/DAY:QD
     Route: 048
     Dates: end: 20140310

REACTIONS (2)
  - Self injurious behaviour [Unknown]
  - Prescribed overdose [Recovered/Resolved]
